FAERS Safety Report 4873666-X (Version None)
Quarter: 2006Q1

REPORT INFORMATION
  Report Type: 
  Country: None (occurrence: None)
  Receive Date: 20060103
  Receipt Date: 20060103
  Transmission Date: 20060701
  Serious: No
  Sender: FDA-Public Use
  Company Number: None

PATIENT
  Age: 67 Year
  Sex: Female
  Weight: 56.6996 kg

DRUGS (2)
  1. COUMADIN [Suspect]
     Indication: HIP ARTHROPLASTY
     Dosage: 1 PILL QD  PO
     Route: 048
     Dates: start: 20030603, end: 20030715
  2. LEVAQUIN [Suspect]
     Indication: HIP ARTHROPLASTY
     Dosage: INJECTION AT TIME OF SURGERY   1 PILL QD  PO
     Route: 048
     Dates: start: 20030603, end: 20030715

REACTIONS (1)
  - NO ADVERSE EFFECT [None]
